FAERS Safety Report 8506097-1 (Version None)
Quarter: 2012Q3

REPORT INFORMATION
  Report Type: 
  Country: None (occurrence: None)
  Receive Date: 20120712
  Receipt Date: 20120709
  Transmission Date: 20120928
  Serious: No
  Sender: FDA-Public Use
  Company Number: DE-ROCHE-1065484

PATIENT
  Sex: Female
  Weight: 73 kg

DRUGS (3)
  1. ACTEMRA [Suspect]
     Indication: POLYARTHRITIS
     Route: 042
     Dates: start: 20120207
  2. ACTEMRA [Suspect]
     Route: 042
     Dates: start: 20120314
  3. BISOPROLOL FUMARATE [Concomitant]

REACTIONS (2)
  - DIZZINESS [None]
  - NAUSEA [None]
